FAERS Safety Report 21047982 (Version 1)
Quarter: 2022Q3

REPORT INFORMATION
  Report Type: Spontaneous
  Country: IE (occurrence: IE)
  Receive Date: 20220706
  Receipt Date: 20220706
  Transmission Date: 20221027
  Serious: Yes (Other)
  Sender: FDA-Public Use
  Company Number: IE-PFIZER INC-PV202200016072

PATIENT

DRUGS (2)
  1. VYNDAQEL [Interacting]
     Active Substance: TAFAMIDIS MEGLUMINE
  2. ROSUVASTATIN [Interacting]
     Active Substance: ROSUVASTATIN
     Dosage: 20 MG

REACTIONS (2)
  - Rhabdomyolysis [Unknown]
  - Drug interaction [Unknown]
